FAERS Safety Report 4492129-7 (Version None)
Quarter: 2004Q3

REPORT INFORMATION
  Report Type: 
  Country: None (occurrence: None)
  Receive Date: 20040924
  Receipt Date: 20040114
  Transmission Date: 20050211
  Serious: No
  Sender: FDA-Public Use
  Company Number: 04P-163-0246450-00

PATIENT
  Age: 56 Year
  Sex: Male

DRUGS (12)
  1. KALETRA [Suspect]
     Indication: HIV INFECTION
  2. T-1249 [Suspect]
     Indication: HIV INFECTION
     Dosage: 192 MG, 1 IN 1 D
     Dates: start: 20031201
  3. ABACAVIR [Concomitant]
  4. LAMIVUDINE [Concomitant]
  5. LEVOTHYROXINE SODIUM [Concomitant]
  6. ATORVASTATIN CALCIUM [Concomitant]
  7. FLUCONAZOLE [Concomitant]
  8. BACTRIM [Concomitant]
  9. ACETYLSALICYLIC ACID [Concomitant]
  10. NICOTINIC ACID [Concomitant]
  11. PIOGLITAZONE HCL [Concomitant]
  12. TERAZOSIN [Concomitant]

REACTIONS (1)
  - BLOOD TRIGLYCERIDES INCREASED [None]
